FAERS Safety Report 8841920 (Version 1)
Quarter: 2012Q4

REPORT INFORMATION
  Report Type: Spontaneous
  Country: US (occurrence: None)
  Receive Date: 20121015
  Receipt Date: 20121015
  Transmission Date: 20130627
  Serious: Yes (Other)
  Sender: FDA-Public Use
  Company Number: None

PATIENT

DRUGS (1)
  1. REBIF [Suspect]
     Indication: MS
     Dosage: 44mcg/0.5ml 3 times per week SQ
     Route: 058
     Dates: start: 20120912, end: 20120920

REACTIONS (5)
  - Decreased appetite [None]
  - Weight decreased [None]
  - Headache [None]
  - Rash [None]
  - Tearfulness [None]
